FAERS Safety Report 5096514-4 (Version None)
Quarter: 2006Q3

REPORT INFORMATION
  Report Type: 
  Country: None (occurrence: None)
  Receive Date: 20060905
  Receipt Date: 20060714
  Transmission Date: 20061208
  Serious: Yes (Death, Hospitalization, Other)
  Sender: FDA-Public Use
  Company Number: AR-BOEHRINGER INGELHEIM PHARMACEUTICALS, INC.-2006-BP-08110RA

PATIENT
  Sex: Male
  Weight: 40 kg

DRUGS (1)
  1. TIPRANAVIR/RITONAVIR SOLUTION [Suspect]
     Indication: HIV INFECTION
     Dosage: 800 MG/320 MG TPV/RTV
     Route: 048
     Dates: start: 20040518, end: 20060711

REACTIONS (26)
  - ACUTE ABDOMEN [None]
  - ALANINE AMINOTRANSFERASE INCREASED [None]
  - ASPARTATE AMINOTRANSFERASE INCREASED [None]
  - BILIARY DILATATION [None]
  - BLOOD ALKALINE PHOSPHATASE INCREASED [None]
  - BLOOD GLUCOSE DECREASED [None]
  - BLOOD LACTATE DEHYDROGENASE INCREASED [None]
  - BLOOD SODIUM DECREASED [None]
  - COAGULOPATHY [None]
  - DIARRHOEA [None]
  - GAMMA-GLUTAMYLTRANSFERASE INCREASED [None]
  - GASTROENTERITIS CRYPTOSPORIDIAL [None]
  - GASTROINTESTINAL HAEMORRHAGE [None]
  - HAEMATOCRIT DECREASED [None]
  - HEPATOSPLENOMEGALY [None]
  - HIV WASTING SYNDROME [None]
  - JAUNDICE [None]
  - LYMPHADENOPATHY [None]
  - LYMPHOMA [None]
  - MALNUTRITION [None]
  - ORAL CANDIDIASIS [None]
  - PANCREATIC ENLARGEMENT [None]
  - PERITONEAL DISORDER [None]
  - PLATELET COUNT DECREASED [None]
  - PYREXIA [None]
  - VITAMIN K DEFICIENCY [None]
